FAERS Safety Report 5671598-0 (Version None)
Quarter: 2008Q1

REPORT INFORMATION
  Report Type: 
  Country: None (occurrence: None)
  Receive Date: 20080313
  Receipt Date: 20080301
  Transmission Date: 20080703
  Serious: Yes (Life-Threatening, Hospitalization, Other)
  Sender: FDA-Public Use
  Company Number: URSO-2007-203

PATIENT
  Age: 83 Year
  Sex: Male

DRUGS (3)
  1. URSO 250 [Suspect]
     Dosage: ORAL
     Route: 048
  2. GLIMEPIRIDE [Concomitant]
  3. HACHIMI-JIO-GAN (A TRADITIONAL JAPANESE HERBAL MEDICINE) [Concomitant]

REACTIONS (10)
  - ABNORMAL BEHAVIOUR [None]
  - BLOOD GLUCOSE INCREASED [None]
  - BLOOD PRESSURE INCREASED [None]
  - CONFUSIONAL STATE [None]
  - GLASGOW COMA SCALE ABNORMAL [None]
  - HEART RATE ABNORMAL [None]
  - INTENTIONAL OVERDOSE [None]
  - LOSS OF CONSCIOUSNESS [None]
  - SUICIDE ATTEMPT [None]
  - VOMITING [None]
